FAERS Safety Report 5599929-0 (Version None)
Quarter: 2008Q1

REPORT INFORMATION
  Report Type: 
  Country: None (occurrence: None)
  Receive Date: 20080123
  Receipt Date: 20080118
  Transmission Date: 20080703
  Serious: Yes (Death)
  Sender: FDA-Public Use
  Company Number: ES-BRISTOL-MYERS SQUIBB COMPANY-13836903

PATIENT
  Age: 37 Year
  Sex: Male

DRUGS (8)
  1. REYATAZ [Suspect]
     Indication: HIV INFECTION
     Route: 048
     Dates: start: 20070615, end: 20070702
  2. NORVIR [Suspect]
     Indication: HIV INFECTION
     Dosage: 100MG 4X84 SOFT CAPSULES
     Route: 048
     Dates: start: 20070615, end: 20070702
  3. SULFADOXINE [Suspect]
     Indication: TOXOPLASMOSIS
     Dates: start: 20070101
  4. PIRIMETAMINA [Concomitant]
     Indication: CEREBRAL TOXOPLASMOSIS
     Route: 048
     Dates: start: 20070615, end: 20070702
  5. DEXAMETHASONE TAB [Concomitant]
     Route: 048
     Dates: start: 20070615, end: 20070702
  6. GABAPENTIN [Concomitant]
     Indication: NEURALGIA
     Route: 048
     Dates: start: 20070615, end: 20070702
  7. TRUVADA [Concomitant]
     Indication: HIV INFECTION
     Dosage: 1 DF = 200MG/245MG. 130 TABS
     Route: 048
     Dates: start: 20070615, end: 20070702
  8. SULFADIAZINE [Concomitant]
     Indication: CEREBRAL TOXOPLASMOSIS
     Route: 048
     Dates: start: 20070615, end: 20070702

REACTIONS (2)
  - ACUTE HEPATIC FAILURE [None]
  - HEPATITIS FULMINANT [None]
